FAERS Safety Report 13150856 (Version 1)
Quarter: 2017Q1

REPORT INFORMATION
  Report Type: Spontaneous
  Country: US (occurrence: US)
  Receive Date: 20170125
  Receipt Date: 20170125
  Transmission Date: 20170428
  Serious: No
  Sender: FDA-Public Use
  Company Number: US-PFIZER INC-2016ANA00183

PATIENT
  Sex: Male

DRUGS (1)
  1. KERYDIN [Suspect]
     Active Substance: TAVABOROLE
     Dosage: UNKNOWN

REACTIONS (1)
  - Accidental exposure to product [Recovered/Resolved]
